FAERS Safety Report 11422174 (Version 1)
Quarter: 2015Q3

REPORT INFORMATION
  Report Type: Spontaneous
  Country: TW (occurrence: TW)
  Receive Date: 20150827
  Receipt Date: 20150827
  Transmission Date: 20151125
  Serious: Yes (Hospitalization, Other)
  Sender: FDA-Public Use
  Company Number: TW-ROCHE-1626973

PATIENT
  Sex: Female

DRUGS (1)
  1. MABTHERA [Suspect]
     Active Substance: RITUXIMAB
     Indication: AUTOIMMUNE DISORDER
     Route: 041
     Dates: start: 201507

REACTIONS (2)
  - Gastrointestinal haemorrhage [Unknown]
  - Bronchial oedema [Unknown]

NARRATIVE: CASE EVENT DATE: 201507
